FAERS Safety Report 4415930-4 (Version None)
Quarter: 2004Q3

REPORT INFORMATION
  Report Type: 
  Country: None (occurrence: None)
  Receive Date: 20040805
  Receipt Date: 20040617
  Transmission Date: 20050211
  Serious: No
  Sender: FDA-Public Use
  Company Number: US-GLAXOSMITHKLINE-A0515147A

PATIENT
  Age: 59 Year
  Sex: Male

DRUGS (8)
  1. AVANDAMET [Suspect]
     Route: 048
     Dates: start: 20040607
  2. PREVACID [Concomitant]
  3. ATENOLOL [Concomitant]
  4. CLARITIN [Concomitant]
  5. ASPIRIN [Concomitant]
  6. FLONASE [Concomitant]
  7. XANAX [Concomitant]
  8. AMARYL [Concomitant]

REACTIONS (2)
  - BLOOD GLUCOSE DECREASED [None]
  - VISUAL DISTURBANCE [None]
